FAERS Safety Report 10685917 (Version 1)
Quarter: 2014Q4

REPORT INFORMATION
  Report Type: Spontaneous
  Country: FR (occurrence: FR)
  Receive Date: 20141231
  Receipt Date: 20141231
  Transmission Date: 20150529
  Serious: Yes (Hospitalization, Other)
  Sender: FDA-Public Use
  Company Number: FR-PFIZER INC-2014358435

PATIENT
  Age: 81 Year
  Sex: Female

DRUGS (8)
  1. CANDESARTAN CILEXETIL/HYDROCHLOORTHIAZIDE [Concomitant]
     Dosage: 1 DF, 1X/DAY
  2. ACEBUTOLOL HYDROCHLORIDE. [Concomitant]
     Active Substance: ACEBUTOLOL HYDROCHLORIDE
     Dosage: 50 MG, 1X/DAY
  3. ZOLPIDEM [Concomitant]
     Active Substance: ZOLPIDEM\ZOLPIDEM TARTRATE
     Dosage: 10 MG, 1X/DAY
  4. XANAX [Suspect]
     Active Substance: ALPRAZOLAM
     Dosage: 0.50 MG, 3X/DAY
  5. OMEPRAZOLE. [Concomitant]
     Active Substance: OMEPRAZOLE
     Dosage: 20 MG, 1X/DAY
  6. CRESTOR [Concomitant]
     Active Substance: ROSUVASTATIN CALCIUM
     Dosage: 10 MG, 1X/DAY
  7. KARDEGIC [Concomitant]
     Active Substance: ASPIRIN LYSINE
     Dosage: 75 MG, 1X/DAY
  8. SPAGULAX MUCILAGE PUR [Concomitant]
     Dosage: 1 DF, 3X/DAY

REACTIONS (3)
  - Fall [Recovered/Resolved]
  - Sciatica [Recovering/Resolving]
  - Disease progression [Recovering/Resolving]

NARRATIVE: CASE EVENT DATE: 20140515
